FAERS Safety Report 4738817-6 (Version None)
Quarter: 2005Q3

REPORT INFORMATION
  Report Type: 
  Country: None (occurrence: None)
  Receive Date: 20050804
  Receipt Date: 20050726
  Transmission Date: 20060218
  Serious: Yes (Other)
  Sender: FDA-Public Use
  Company Number: 2005107288

PATIENT
  Age: 28 Year
  Sex: Female

DRUGS (3)
  1. DEPO-PROVERA [Suspect]
     Indication: CONTRACEPTION
     Dosage: 150 MG (150 MG, 1ST INJECTION, TRIMESTRAL)
     Dates: start: 20050723, end: 20050723
  2. NORTRIPTYLINE HCL [Concomitant]
  3. ATENOLOL [Concomitant]

REACTIONS (2)
  - HEADACHE [None]
  - MIGRAINE [None]
